FAERS Safety Report 9949109 (Version 1)
Quarter: 2014Q1

REPORT INFORMATION
  Report Type: Spontaneous
  Country: US (occurrence: None)
  Receive Date: 20140122
  Receipt Date: 20140122
  Transmission Date: 20141002
  Serious: No
  Sender: FDA-Public Use
  Company Number: AEGR000197

PATIENT
  Age: 60 Year
  Sex: Female

DRUGS (6)
  1. JUXTAPID [Suspect]
     Indication: TYPE IIA HYPERLIPIDAEMIA
     Route: 048
     Dates: start: 2013
  2. BRILINTA (TICAGRELOR) [Concomitant]
  3. LOPRESSOR (METOPROLOL TARTRATE) [Concomitant]
  4. ASPIRIN (ACETYLSALICYLIC ACID) [Concomitant]
  5. VITAMIN E (TOCOPHERYL ACETATE) [Concomitant]
  6. FISH OIL (FISH OIL) [Concomitant]

REACTIONS (1)
  - Malaise [None]
